FAERS Safety Report 8769855 (Version 4)
Quarter: 2015Q2

REPORT INFORMATION
  Report Type: Report from Study
  Country: US (occurrence: US)
  Receive Date: 20120905
  Receipt Date: 20150511
  Transmission Date: 20150821
  Serious: Yes (Other)
  Sender: FDA-Public Use
  Company Number: US-009507513-1209USA000204

PATIENT

DRUGS (7)
  1. TEMSIROLIMUS [Suspect]
     Active Substance: TEMSIROLIMUS
     Indication: NEOPLASM
     Dosage: ESCALATING DOSES ON DAY 1 AND 8 OF 21 DAYS CYCLE
     Route: 042
  2. IRINOTECAN HYDROCHLORIDE. [Suspect]
     Active Substance: IRINOTECAN HYDROCHLORIDE
     Dosage: 90 MG/M2, UNK
     Route: 048
  3. IRINOTECAN HYDROCHLORIDE. [Suspect]
     Active Substance: IRINOTECAN HYDROCHLORIDE
     Indication: NEOPLASM
     Dosage: 50 MG/M2, UNK
     Route: 048
  4. TEMODAR [Suspect]
     Active Substance: TEMOZOLOMIDE
     Dosage: 150  MG/M2, UNK
     Route: 048
  5. TEMODAR [Suspect]
     Active Substance: TEMOZOLOMIDE
     Dosage: 125 MG/M2, UNK
  6. TEMODAR [Suspect]
     Active Substance: TEMOZOLOMIDE
     Indication: NEOPLASM
     Dosage: 100 MG/M2,UNK
     Route: 048
  7. TEMSIROLIMUS [Suspect]
     Active Substance: TEMSIROLIMUS
     Dosage: 30 MG/M2, QW
     Route: 042

REACTIONS (12)
  - Lymphopenia [Unknown]
  - Leukopenia [Unknown]
  - Diarrhoea [Unknown]
  - Hypokalaemia [Unknown]
  - Infection [Unknown]
  - Anaemia [Unknown]
  - Hypophosphataemia [Unknown]
  - Thrombocytopenia [Unknown]
  - Vomiting [Unknown]
  - Nausea [Unknown]
  - Transaminases increased [Unknown]
  - Neutropenia [Unknown]
